FAERS Safety Report 15990883 (Version 1)
Quarter: 2019Q1

REPORT INFORMATION
  Report Type: Spontaneous
  Country: US (occurrence: US)
  Receive Date: 20190128
  Receipt Date: 20190128
  Transmission Date: 20190418
  Serious: No
  Sender: FDA-Public Use
  Company Number: None

PATIENT
  Age: 40 Year
  Sex: Female

DRUGS (1)
  1. ORENCIA [Suspect]
     Active Substance: ABATACEPT
     Indication: RHEUMATOID ARTHRITIS
     Dates: start: 20180301

REACTIONS (3)
  - Symptom recurrence [None]
  - Therapy cessation [None]
  - Rheumatoid arthritis [None]

NARRATIVE: CASE EVENT DATE: 20190110
